FAERS Safety Report 5470513-2 (Version None)
Quarter: 2007Q3

REPORT INFORMATION
  Report Type: 
  Country: None (occurrence: None)
  Receive Date: 20070820
  Receipt Date: 20070420
  Transmission Date: 20080115
  Serious: No
  Sender: FDA-Public Use
  Company Number: WAES 0704USA04768

PATIENT
  Age: 61 Year
  Sex: Male

DRUGS (8)
  1. JANUVIA [Suspect]
     Indication: TYPE 2 DIABETES MELLITUS
     Dosage: 100 MG/ DAILY/ PO
     Route: 048
     Dates: start: 20070207, end: 20070411
  2. AVANDIA [Concomitant]
  3. HUMALOG [Concomitant]
  4. LANTUS [Concomitant]
  5. LORTAB [Concomitant]
  6. LOTREL [Concomitant]
  7. VYTORIN [Concomitant]
  8. ASPIRIN [Concomitant]

REACTIONS (2)
  - DIZZINESS [None]
  - WEIGHT DECREASED [None]
